FAERS Safety Report 8332571-7 (Version None)
Quarter: 2012Q1

REPORT INFORMATION
  Report Type: 
  Country: None (occurrence: None)
  Receive Date: 20120327
  Receipt Date: 20110331
  Transmission Date: 20120608
  Serious: Yes (Hospitalization)
  Sender: FDA-Public Use
  Company Number: PHEH2007US01306

PATIENT
  Age: 64 Year
  Sex: Female
  Weight: 61.7 kg

DRUGS (9)
  1. VITAMIN D [Concomitant]
  2. GABAPENTIN [Concomitant]
  3. GLEEVEC [Suspect]
     Indication: CHRONIC MYELOID LEUKAEMIA
     Dosage: 400 MG, QD, ORAL; 400 MG, DAILY, ORAL
     Route: 048
     Dates: start: 20061214
  4. GLEEVEC [Suspect]
     Indication: CHRONIC MYELOID LEUKAEMIA
     Dosage: 400 MG, QD, ORAL; 400 MG, DAILY, ORAL
     Route: 048
     Dates: start: 20080107
  5. LORAZEPAM [Concomitant]
  6. MULTIVITAMINS (ASCORBIC ACID, ERGOCALCIFEROL, FOLIC ACID, NICOTINAMIDE [Concomitant]
  7. CALCIUM [Concomitant]
  8. NADOLOL [Concomitant]
  9. ALLOPURINOL [Concomitant]

REACTIONS (8)
  - DRY EYE [None]
  - NAUSEA [None]
  - COUGH [None]
  - TACHYCARDIA [None]
  - HEART RATE INCREASED [None]
  - PALPITATIONS [None]
  - FEELING ABNORMAL [None]
  - ANXIETY [None]
